FAERS Safety Report 7597671-8 (Version None)
Quarter: 2011Q3

REPORT INFORMATION
  Report Type: 
  Country: None (occurrence: None)
  Receive Date: 20110708
  Receipt Date: 20110615
  Transmission Date: 20111222
  Serious: Yes (Hospitalization)
  Sender: FDA-Public Use
  Company Number: US-GLAXOSMITHKLINE-A0788890A

PATIENT
  Age: 58 Year
  Sex: Female
  Weight: 108.2 kg

DRUGS (5)
  1. LIPITOR [Concomitant]
  2. LISINOPRIL [Concomitant]
  3. VERPAMIL HCL [Concomitant]
  4. ZOLOFT [Concomitant]
  5. AVANDIA [Suspect]
     Indication: TYPE 2 DIABETES MELLITUS
     Dosage: 4MG PER DAY
     Route: 048
     Dates: start: 20020101, end: 20070814

REACTIONS (6)
  - CARDIOVASCULAR DISORDER [None]
  - FRACTURE [None]
  - PAIN [None]
  - ARRHYTHMIA [None]
  - MYOCARDIAL INFARCTION [None]
  - CARDIOMEGALY [None]
